FAERS Safety Report 7726791-X (Version None)
Quarter: 2011Q3

REPORT INFORMATION
  Report Type: 
  Country: None (occurrence: None)
  Receive Date: 20110902
  Receipt Date: 20110822
  Transmission Date: 20111222
  Serious: Yes (Hospitalization)
  Sender: FDA-Public Use
  Company Number: JP-GLAXOSMITHKLINE-B0657636A

PATIENT
  Sex: Female

DRUGS (5)
  1. LITHIUM CARBONATE [Concomitant]
     Indication: BIPOLAR DISORDER
     Dosage: 400MG PER DAY
     Route: 048
     Dates: start: 20090515, end: 20100523
  2. LAMICTAL [Suspect]
     Indication: DEPRESSION
     Route: 048
     Dates: start: 20100423, end: 20100520
  3. ROHYPNOL [Concomitant]
     Indication: BIPOLAR DISORDER
     Dosage: 2MG PER DAY
     Route: 048
     Dates: start: 20100507, end: 20100523
  4. DEPAKENE [Concomitant]
     Indication: BIPOLAR DISORDER
     Dosage: 400MG PER DAY
     Route: 048
     Dates: start: 20091224, end: 20100523
  5. PURSENNID [Concomitant]
     Indication: CONSTIPATION
     Dosage: 36MG PER DAY
     Route: 048
     Dates: start: 20090807, end: 20100523

REACTIONS (30)
  - BLOOD AMYLASE INCREASED [None]
  - BLOOD UREA INCREASED [None]
  - ORAL MUCOSAL ERYTHEMA [None]
  - CORNEAL EROSION [None]
  - PAIN [None]
  - ASPARTATE AMINOTRANSFERASE INCREASED [None]
  - KERATITIS [None]
  - EPIDERMAL NECROSIS [None]
  - STEVENS-JOHNSON SYNDROME [None]
  - PHARYNGEAL ERYTHEMA [None]
  - LIP ULCERATION [None]
  - LIP SWELLING [None]
  - PYREXIA [None]
  - CONJUNCTIVAL HYPERAEMIA [None]
  - SKIN EROSION [None]
  - DYSKINESIA [None]
  - LYMPHOCYTE STIMULATION TEST POSITIVE [None]
  - PARAESTHESIA ORAL [None]
  - BLISTER [None]
  - UNEVALUABLE EVENT [None]
  - SWELLING FACE [None]
  - EATING DISORDER [None]
  - C-REACTIVE PROTEIN INCREASED [None]
  - GAMMA-GLUTAMYLTRANSFERASE DECREASED [None]
  - EYELID FUNCTION DISORDER [None]
  - DRUG ERUPTION [None]
  - RASH [None]
  - ALANINE AMINOTRANSFERASE INCREASED [None]
  - BLOOD LACTATE DEHYDROGENASE INCREASED [None]
  - WHITE BLOOD CELL COUNT INCREASED [None]
